FAERS Safety Report 24332431 (Version 1)
Quarter: 2024Q3

REPORT INFORMATION
  Report Type: Spontaneous
  Country: BR (occurrence: BR)
  Receive Date: 20240918
  Receipt Date: 20240918
  Transmission Date: 20241016
  Serious: Yes (Other)
  Sender: BAXTER
  Company Number: BR-BAXTER-2024BAX024370

PATIENT
  Age: 18 Year
  Sex: Female
  Weight: 68 kg

DRUGS (2)
  1. IRON [Suspect]
     Active Substance: IRON
     Indication: Mineral supplementation
     Dosage: 100 MG/5ML, DILUTED IN 250 ML OF 0.9% SALINE SOLUTION, INFUSION CARRIED OUT BETWEEN 50 AND 60 MINUTE
     Route: 042
     Dates: start: 20240711, end: 20240711
  2. SODIUM CHLORIDE [Suspect]
     Active Substance: SODIUM CHLORIDE
     Indication: Medication dilution
     Dosage: 250 ML USED TO DILUTE SUCROFER, INFUSION CARRIED OUT BETWEEN 50 AND 60 MINUTES (STARTING AT 2:30AM A
     Route: 042
     Dates: start: 20240711, end: 20240711

REACTIONS (6)
  - Cyanosis [Recovered/Resolved]
  - Rash [Recovered/Resolved]
  - Urticaria [Recovered/Resolved]
  - Pruritus [Unknown]
  - Skin plaque [Unknown]
  - Erythema [Unknown]

NARRATIVE: CASE EVENT DATE: 20240711
